FAERS Safety Report 12727519 (Version 1)
Quarter: 2016Q3

REPORT INFORMATION
  Report Type: Spontaneous
  Country: CA (occurrence: CA)
  Receive Date: 20160909
  Receipt Date: 20160909
  Transmission Date: 20161109
  Serious: Yes (Other)
  Sender: FDA-Public Use
  Company Number: CA-ORION CORPORATION ORION PHARMA-TREX2016-1640

PATIENT
  Age: 81 Year
  Sex: Male

DRUGS (3)
  1. ORENCIA [Suspect]
     Active Substance: ABATACEPT
     Route: 065
     Dates: end: 20160830
  2. ACTEMRA [Suspect]
     Active Substance: TOCILIZUMAB
     Route: 065
  3. METHOTREXATE (TRADE NAME UNKNOWN) [Suspect]
     Active Substance: METHOTREXATE
     Indication: RHEUMATOID ARTHRITIS
     Route: 065

REACTIONS (9)
  - Cardiac failure [Unknown]
  - Pain [Not Recovered/Not Resolved]
  - Swelling [Not Recovered/Not Resolved]
  - Treatment failure [Unknown]
  - Drug intolerance [Unknown]
  - Parkinson^s disease [Unknown]
  - Speech disorder [Unknown]
  - Joint effusion [Unknown]
  - Balance disorder [Unknown]

NARRATIVE: CASE EVENT DATE: 2015
